FAERS Safety Report 9098008 (Version 2)
Quarter: 2013Q3

REPORT INFORMATION
  Report Type: Report from Study
  Country: US (occurrence: US)
  Receive Date: 20130212
  Receipt Date: 20130715
  Transmission Date: 20140515
  Serious: Yes (Hospitalization, Other)
  Sender: FDA-Public Use
  Company Number: US-BRISTOL-MYERS SQUIBB COMPANY-17352964

PATIENT
  Age: 65 Year
  Sex: Male

DRUGS (6)
  1. SAXAGLIPTIN [Suspect]
     Indication: TYPE 2 DIABETES MELLITUS
     Dates: start: 20100825, end: 20130129
  2. METFORMIN HCL [Suspect]
     Indication: TYPE 2 DIABETES MELLITUS
  3. GLIPIZIDE [Suspect]
     Indication: TYPE 2 DIABETES MELLITUS
  4. LANTUS [Suspect]
     Indication: TYPE 2 DIABETES MELLITUS
  5. WARFARIN [Suspect]
  6. ASPIRIN [Concomitant]

REACTIONS (1)
  - Gastric ulcer [Recovered/Resolved with Sequelae]
